FAERS Safety Report 18612747 (Version 1)
Quarter: 2020Q4

REPORT INFORMATION
  Report Type: Spontaneous
  Country: DE (occurrence: DE)
  Receive Date: 20201214
  Receipt Date: 20201214
  Transmission Date: 20210114
  Serious: Yes (Other)
  Sender: FDA-Public Use
  Company Number: DE-MYLANLABS-2020M1101308

PATIENT
  Age: 76 Year
  Sex: Male
  Weight: 85 kg

DRUGS (1)
  1. HULIO [Suspect]
     Active Substance: ADALIMUMAB-FKJP
     Indication: PRODUCT USED FOR UNKNOWN INDICATION
     Dosage: UNK

REACTIONS (7)
  - Disease recurrence [Not Recovered/Not Resolved]
  - Therapeutic response decreased [Unknown]
  - Product storage error [Unknown]
  - Psoriasis [Unknown]
  - Injection site exfoliation [Unknown]
  - Injection site pruritus [Unknown]
  - Injection site erythema [Unknown]
